FAERS Safety Report 21115448 (Version 1)
Quarter: 2022Q3

REPORT INFORMATION
  Report Type: Spontaneous
  Country: US (occurrence: US)
  Receive Date: 20220721
  Receipt Date: 20220721
  Transmission Date: 20221027
  Serious: No
  Sender: FDA-Public Use
  Company Number: US-PERRIGO-22US004770

PATIENT
  Age: 49 Year
  Sex: Male
  Weight: 82.993 kg

DRUGS (1)
  1. MINOXIDIL [Suspect]
     Active Substance: MINOXIDIL
     Indication: Insomnia
     Dosage: 1 ML, SINGLE
     Route: 061
     Dates: start: 20220325, end: 20220325

REACTIONS (5)
  - Application site vesicles [Not Recovered/Not Resolved]
  - Myalgia [Recovering/Resolving]
  - Application site erythema [Not Recovered/Not Resolved]
  - Application site pain [Not Recovered/Not Resolved]
  - Application site pruritus [Recovered/Resolved]

NARRATIVE: CASE EVENT DATE: 20220325
